FAERS Safety Report 5147721-3 (Version None)
Quarter: 2006Q4

REPORT INFORMATION
  Report Type: 
  Country: None (occurrence: None)
  Receive Date: 20061110
  Receipt Date: 20060725
  Transmission Date: 20070319
  Serious: Yes (Hospitalization, Other)
  Sender: FDA-Public Use
  Company Number: 2006UW15030

PATIENT
  Age: 708 Month
  Sex: Female
  Weight: 90.9 kg

DRUGS (4)
  1. SEROQUEL [Suspect]
     Indication: BIPOLAR II DISORDER
     Dosage: 400 TO 500 MG
     Route: 048
     Dates: start: 20030701, end: 20060601
  2. CYMBALTA [Concomitant]
     Dosage: 60 TO 120 MG
     Route: 048
     Dates: start: 20041001
  3. DEPAKOTE [Concomitant]
     Route: 048
  4. EFFEXOR [Concomitant]

REACTIONS (5)
  - COGWHEEL RIGIDITY [None]
  - FALL [None]
  - GAIT DISTURBANCE [None]
  - MUSCULOSKELETAL STIFFNESS [None]
  - PARKINSONISM [None]
